FAERS Safety Report 24730161 (Version 1)
Quarter: 2024Q4

REPORT INFORMATION
  Report Type: Spontaneous
  Country: US (occurrence: US)
  Receive Date: 20241213
  Receipt Date: 20241213
  Transmission Date: 20250115
  Serious: Yes (Hospitalization)
  Sender: GRAVITI PHARMACEUTICALS PRIVATE LIMITED
  Company Number: US-GRAVITIPHARMA-GRA-2411-US-LIT-0679

PATIENT
  Weight: 54 kg

DRUGS (4)
  1. ESCITALOPRAM [Suspect]
     Active Substance: ESCITALOPRAM OXALATE
     Indication: Anxiety
     Dosage: THREE TABLETS
     Route: 065
  2. ESCITALOPRAM [Suspect]
     Active Substance: ESCITALOPRAM OXALATE
     Indication: Depression
     Route: 065
  3. GUANFACINE [Suspect]
     Active Substance: GUANFACINE
     Indication: Anxiety
     Route: 065
  4. GUANFACINE [Suspect]
     Active Substance: GUANFACINE
     Route: 065

REACTIONS (3)
  - Somnolence [Recovered/Resolved]
  - Dizziness [Recovered/Resolved]
  - Intentional overdose [Unknown]
